FAERS Safety Report 4944311-X (Version None)
Quarter: 2006Q1

REPORT INFORMATION
  Report Type: 
  Country: None (occurrence: None)
  Receive Date: 20060309
  Receipt Date: 20060223
  Transmission Date: 20060701
  Serious: Yes (Other)
  Sender: FDA-Public Use
  Company Number: 2005BI013419

PATIENT
  Sex: Female

DRUGS (2)
  1. AVONEX [Suspect]
     Indication: MULTIPLE SCLEROSIS
     Dosage: 30 UG;QW;IM
     Route: 030
     Dates: start: 20041101
  2. PROVIGIL [Concomitant]

REACTIONS (4)
  - ABDOMINAL DISTENSION [None]
  - BIOPSY BONE MARROW ABNORMAL [None]
  - HEPATOMEGALY [None]
  - SPLENOMEGALY [None]
